FAERS Safety Report 11403035 (Version 1)
Quarter: 2015Q3

REPORT INFORMATION
  Report Type: Spontaneous
  Country: US (occurrence: US)
  Receive Date: 20150821
  Receipt Date: 20150821
  Transmission Date: 20151125
  Serious: Yes (Hospitalization, Other)
  Sender: FDA-Public Use
  Company Number: US-ROCHE-1363646

PATIENT
  Sex: Male

DRUGS (9)
  1. PEGASYS [Suspect]
     Active Substance: PEGINTERFERON ALFA-2A
     Indication: CHRONIC HEPATITIS C
     Route: 058
     Dates: start: 20040109
  2. PEGASYS [Suspect]
     Active Substance: PEGINTERFERON ALFA-2A
     Route: 058
     Dates: start: 200510
  3. PEGASYS [Suspect]
     Active Substance: PEGINTERFERON ALFA-2A
     Route: 058
     Dates: start: 200706, end: 20080831
  4. LACTULOSE. [Concomitant]
     Active Substance: LACTULOSE
     Indication: HEPATIC ENCEPHALOPATHY
     Route: 065
  5. RIBAVIRIN. [Suspect]
     Active Substance: RIBAVIRIN
     Dosage: DIVIDED DOSES
     Route: 048
     Dates: start: 200510
  6. AMITIZA [Concomitant]
     Active Substance: LUBIPROSTONE
     Indication: HEPATIC ENCEPHALOPATHY
     Route: 065
  7. RIBAVIRIN. [Suspect]
     Active Substance: RIBAVIRIN
     Dosage: DIVIDED DOSES
     Route: 048
     Dates: start: 200706, end: 20080831
  8. CYTOTEC [Concomitant]
     Active Substance: MISOPROSTOL
     Indication: HEPATIC ENCEPHALOPATHY
     Route: 065
  9. RIBAVIRIN. [Suspect]
     Active Substance: RIBAVIRIN
     Indication: CHRONIC HEPATITIS C
     Dosage: DIVIDED DOSES
     Route: 048
     Dates: start: 20040109

REACTIONS (7)
  - General physical health deterioration [Unknown]
  - Memory impairment [Unknown]
  - Hepatic cirrhosis [Unknown]
  - Cellulitis [Unknown]
  - Hepatic cancer [Unknown]
  - Hepatitis C [Unknown]
  - Hepatic encephalopathy [Unknown]

NARRATIVE: CASE EVENT DATE: 2009
